FAERS Safety Report 7545137-3 (Version None)
Quarter: 2011Q2

REPORT INFORMATION
  Report Type: 
  Country: None (occurrence: None)
  Receive Date: 20110610
  Receipt Date: 20110610
  Transmission Date: 20111010
  Serious: Yes (Other)
  Sender: FDA-Public Use
  Company Number: None

PATIENT
  Sex: Male
  Weight: 74.8435 kg

DRUGS (4)
  1. REMERON [Suspect]
     Indication: DECREASED APPETITE
     Dosage: 15 MG 1 OR 2 @ BEDTIME ORAL
     Route: 048
     Dates: start: 20110411
  2. REMERON [Suspect]
     Indication: DEPRESSION
     Dosage: 15 MG 1 OR 2 @ BEDTIME ORAL
     Route: 048
     Dates: start: 20110411
  3. REMERON [Suspect]
     Indication: DECREASED APPETITE
     Dosage: 15 MG 1 OR 2 @ BEDTIME ORAL
     Route: 048
     Dates: start: 20110412
  4. REMERON [Suspect]
     Indication: DEPRESSION
     Dosage: 15 MG 1 OR 2 @ BEDTIME ORAL
     Route: 048
     Dates: start: 20110412

REACTIONS (11)
  - CHILLS [None]
  - BALANCE DISORDER [None]
  - HALLUCINATION [None]
  - COORDINATION ABNORMAL [None]
  - DECREASED APPETITE [None]
  - HYPERREFLEXIA [None]
  - ASTHENIA [None]
  - MEMORY IMPAIRMENT [None]
  - CHEILITIS [None]
  - STOMATITIS [None]
  - CONFUSIONAL STATE [None]
